FAERS Safety Report 25670907 (Version 1)
Quarter: 2025Q3

REPORT INFORMATION
  Report Type: Spontaneous
  Country: US (occurrence: None)
  Receive Date: 20250811
  Receipt Date: 20250811
  Transmission Date: 20251020
  Serious: Yes (Hospitalization)
  Sender: FDA-CTU
  Company Number: None

PATIENT
  Sex: Female

DRUGS (5)
  1. OPSUMIT [Suspect]
     Active Substance: MACITENTAN
     Indication: Pulmonary arterial hypertension
     Dosage: FREQUENCY : DAILY;?
     Route: 048
     Dates: start: 20210805
  2. SODIUM CHLOR SDV (50ML/FTV) [Concomitant]
  3. LIDOCAINE/PRILOCAINE CRM [Concomitant]
  4. REMUNITY CART W/FILL AID [Concomitant]
  5. REMODULIN [Suspect]
     Active Substance: TREPROSTINIL

REACTIONS (3)
  - Product dose omission issue [None]
  - Headache [None]
  - Therapy change [None]
